FAERS Safety Report 19786569 (Version 1)
Quarter: 2021Q3

REPORT INFORMATION
  Report Type: Spontaneous
  Country: US (occurrence: US)
  Receive Date: 20210903
  Receipt Date: 20210903
  Transmission Date: 20211014
  Serious: Yes (Death)
  Sender: FDA-Public Use
  Company Number: US-ADAMAS PHARMA, LLC-2021ADA02097

PATIENT
  Age: 88 Year
  Sex: Female

DRUGS (3)
  1. UNSPECIFIED LEVODOPA?BASED THERAPY [Concomitant]
     Active Substance: LEVODOPA
  2. GOCOVRI [Suspect]
     Active Substance: AMANTADINE
     Indication: DYSKINESIA
     Dosage: 137 MG, 1X/DAY AT BEDTIME
     Route: 048
     Dates: start: 20180309, end: 2021
  3. NUPLAZID [Concomitant]
     Active Substance: PIMAVANSERIN TARTRATE

REACTIONS (2)
  - Pneumonia [Fatal]
  - Failure to thrive [Fatal]

NARRATIVE: CASE EVENT DATE: 20210721
